FAERS Safety Report 10332269 (Version 1)
Quarter: 2014Q3

REPORT INFORMATION
  Report Type: Spontaneous
  Country: FR (occurrence: None)
  Receive Date: 20140718
  Receipt Date: 20140718
  Transmission Date: 20150326
  Serious: Yes (Other)
  Sender: FDA-Public Use
  Company Number: 2014-FE-006264

PATIENT
  Sex: Male

DRUGS (3)
  1. PRIALT [Suspect]
     Active Substance: ZICONOTIDE ACETATE
     Indication: CANCER PAIN
     Route: 037
  2. MORPHINE SULFATE (MORPHINE SULFATE) INJECTION [Suspect]
     Active Substance: MORPHINE SULFATE
     Indication: CANCER PAIN
     Route: 037
  3. NAROPIN [Suspect]
     Active Substance: ROPIVACAINE HYDROCHLORIDE
     Indication: CANCER PAIN
     Route: 037

REACTIONS (4)
  - Underdose [None]
  - Neoplasm malignant [None]
  - Overdose [None]
  - Device issue [None]

NARRATIVE: CASE EVENT DATE: 20140506
